FAERS Safety Report 24933935 (Version 1)
Quarter: 2025Q1

REPORT INFORMATION
  Report Type: Report from Study
  Country: US (occurrence: US)
  Receive Date: 20250206
  Receipt Date: 20250206
  Transmission Date: 20250408
  Serious: Yes (Hospitalization)
  Sender: EXELIXIS
  Company Number: US-EXELIXIS-CABO-24076352

PATIENT
  Age: 70 Year
  Sex: Male
  Weight: 95.238 kg

DRUGS (35)
  1. CABOMETYX [Suspect]
     Active Substance: CABOZANTINIB S-MALATE
     Indication: Renal cancer
     Dosage: 60 MG, QD
     Route: 048
     Dates: start: 20230331
  2. CABOMETYX [Suspect]
     Active Substance: CABOZANTINIB S-MALATE
     Indication: Renal disorder
  3. CABOMETYX [Suspect]
     Active Substance: CABOZANTINIB S-MALATE
     Indication: Ureteral disorder
  4. CABOMETYX [Suspect]
     Active Substance: CABOZANTINIB S-MALATE
     Indication: Neoplasm malignant
  5. CABOMETYX [Suspect]
     Active Substance: CABOZANTINIB S-MALATE
     Indication: Metastases to gastrointestinal tract
  6. CABOMETYX [Suspect]
     Active Substance: CABOZANTINIB S-MALATE
     Indication: Metastases to the respiratory system
  7. LENVIMA [Suspect]
     Active Substance: LENVATINIB
     Indication: Renal cancer
  8. LENVIMA [Suspect]
     Active Substance: LENVATINIB
     Indication: Renal disorder
  9. LENVIMA [Suspect]
     Active Substance: LENVATINIB
     Indication: Neoplasm malignant
  10. LENVIMA [Suspect]
     Active Substance: LENVATINIB
     Indication: Metastases to gastrointestinal tract
  11. LENVIMA [Suspect]
     Active Substance: LENVATINIB
     Indication: Metastases to the respiratory system
  12. KEYTRUDA [Concomitant]
     Active Substance: PEMBROLIZUMAB
  13. CALCIUM\CHOLECALCIFEROL [Concomitant]
     Active Substance: CALCIUM\CHOLECALCIFEROL
  14. CLOBETASOL [Concomitant]
     Active Substance: CLOBETASOL
  15. FORMOTEROL FUMARATE [Concomitant]
     Active Substance: FORMOTEROL FUMARATE
  16. SENNA [Concomitant]
     Active Substance: SENNOSIDES
  17. MEN^S 50 PLUS MULTIVITAMIN [Concomitant]
  18. COENZYME Q10 [Concomitant]
     Active Substance: DIETARY SUPPLEMENT\UBIDECARENONE
  19. VITAMIN B12 [Concomitant]
     Active Substance: CYANOCOBALAMIN
  20. VITAMIN D3 [Concomitant]
     Active Substance: CHOLECALCIFEROL
  21. TIZANIDINE HYDROCHLORIDE [Concomitant]
     Active Substance: TIZANIDINE HYDROCHLORIDE
  22. PREGABALIN [Concomitant]
     Active Substance: PREGABALIN
  23. ALLOPURINOL [Concomitant]
     Active Substance: ALLOPURINOL
  24. METOPROLOL SUCCINATE [Concomitant]
     Active Substance: METOPROLOL SUCCINATE
  25. DEXAMETHASONE [Concomitant]
     Active Substance: DEXAMETHASONE
  26. MORPHINE SULFATE [Concomitant]
     Active Substance: MORPHINE SULFATE
  27. SODIUM CHLORIDE [Concomitant]
     Active Substance: SODIUM CHLORIDE
  28. TYLENOL [Concomitant]
     Active Substance: ACETAMINOPHEN
  29. MONTELUKAST SODIUM [Concomitant]
     Active Substance: MONTELUKAST SODIUM
  30. TAMSULOSIN HYDROCHLORIDE [Concomitant]
     Active Substance: TAMSULOSIN HYDROCHLORIDE
  31. IRBESARTAN AND HYDROCHLOROTHIAZIDE [Concomitant]
     Active Substance: HYDROCHLOROTHIAZIDE\IRBESARTAN
  32. ASPIRIN [Concomitant]
     Active Substance: ASPIRIN
  33. ATORVASTATIN CALCIUM [Concomitant]
     Active Substance: ATORVASTATIN CALCIUM
  34. HYDROXYCHLOROQUINE SULFATE [Concomitant]
     Active Substance: HYDROXYCHLOROQUINE SULFATE
  35. LEVOTHYROXINE [Concomitant]
     Active Substance: LEVOTHYROXINE

REACTIONS (9)
  - Asthenia [Not Recovered/Not Resolved]
  - Dehydration [Not Recovered/Not Resolved]
  - Confusional state [Not Recovered/Not Resolved]
  - Blister [Not Recovered/Not Resolved]
  - Stomatitis [Unknown]
  - Diarrhoea [Recovered/Resolved]
  - Blood pressure increased [Not Recovered/Not Resolved]
  - Tooth disorder [Unknown]
  - Hypophagia [Unknown]

NARRATIVE: CASE EVENT DATE: 20240401
